FAERS Safety Report 13602773 (Version 1)
Quarter: 2017Q2

REPORT INFORMATION
  Report Type: Spontaneous
  Country: HR (occurrence: HR)
  Receive Date: 20170601
  Receipt Date: 20170601
  Transmission Date: 20170830
  Serious: Yes (Hospitalization, Other)
  Sender: FDA-Public Use
  Company Number: PHHY2017HR079577

PATIENT
  Age: 18 Year
  Sex: Female

DRUGS (3)
  1. TEGRETOL [Suspect]
     Active Substance: CARBAMAZEPINE
     Indication: EPILEPSY
     Dosage: 400 MG, UNK
     Route: 048
     Dates: start: 20120605, end: 20120704
  2. DEPAKINE CHRONO [Concomitant]
     Active Substance: VALPROATE SODIUM
     Indication: EPILEPSY
     Dosage: 1200 MG, UNK
     Route: 048
  3. NORMABEL [Concomitant]
     Active Substance: DIAZEPAM
     Indication: EPILEPSY
     Dosage: 2 MG, BID
     Route: 048

REACTIONS (4)
  - Febrile neutropenia [Recovered/Resolved]
  - Transaminases increased [Recovered/Resolved]
  - Rash macular [Recovered/Resolved]
  - White blood cell count decreased [Unknown]

NARRATIVE: CASE EVENT DATE: 20120620
